FAERS Safety Report 9013952 (Version 1)
Quarter: 2013Q1

REPORT INFORMATION
  Report Type: Spontaneous
  Country: US (occurrence: None)
  Receive Date: 20130109
  Receipt Date: 20130109
  Transmission Date: 20140127
  Serious: No
  Sender: FDA-Public Use
  Company Number: None

PATIENT
  Age: 69 Year
  Sex: Male
  Weight: 74.84 kg

DRUGS (1)
  1. STRIBILD [Suspect]

REACTIONS (9)
  - Back pain [None]
  - Back pain [None]
  - Local swelling [None]
  - Local swelling [None]
  - Local swelling [None]
  - Swelling face [None]
  - Lip swelling [None]
  - Muscle spasms [None]
  - Muscle spasms [None]
